FAERS Safety Report 4770647-1 (Version None)
Quarter: 2005Q3

REPORT INFORMATION
  Report Type: 
  Country: None (occurrence: None)
  Receive Date: 20050914
  Receipt Date: 20050914
  Transmission Date: 20060218
  Serious: No
  Sender: FDA-Public Use
  Company Number: None

PATIENT
  Sex: Male
  Weight: 29.1 kg

DRUGS (3)
  1. LAMICTAL [Suspect]
     Dosage: 100MG BID PO
     Route: 048
     Dates: start: 20050801, end: 20050805
  2. SEROQUEL [Concomitant]
  3. GEODON/ATIVAN [Concomitant]

REACTIONS (2)
  - DRUG ERUPTION [None]
  - RASH GENERALISED [None]
